FAERS Safety Report 24307299 (Version 1)
Quarter: 2024Q3

REPORT INFORMATION
  Report Type: Spontaneous
  Country: GB (occurrence: GB)
  Receive Date: 20240911
  Receipt Date: 20240911
  Transmission Date: 20241017
  Serious: Yes (Other)
  Sender: UCB
  Company Number: GB-UCBSA-2024044755

PATIENT
  Sex: Male

DRUGS (1)
  1. CIMZIA [Suspect]
     Active Substance: CERTOLIZUMAB PEGOL
     Indication: Rheumatoid arthritis
     Dosage: UNK
     Route: 063

REACTIONS (3)
  - Pneumonia [Recovering/Resolving]
  - Viral infection [Recovering/Resolving]
  - Exposure via breast milk [Unknown]
